FAERS Safety Report 8738142 (Version 10)
Quarter: 2015Q2

REPORT INFORMATION
  Report Type: Report from Study
  Country: IL (occurrence: IL)
  Receive Date: 20120823
  Receipt Date: 20150428
  Transmission Date: 20150821
  Serious: Yes (Hospitalization)
  Sender: FDA-Public Use
  Company Number: IL-MERCK-1204USA01384

PATIENT
  Age: 31 Year
  Sex: Male
  Weight: 86 kg

DRUGS (8)
  1. REBETOL [Suspect]
     Active Substance: RIBAVIRIN
     Dosage: 3 DF, BID
     Route: 048
     Dates: start: 20111221, end: 20120122
  2. PEGINTRON [Suspect]
     Active Substance: PEGINTERFERON ALFA-2B
     Indication: CHRONIC HEPATITIS C
     Dosage: 150 MCG PER 0.5 ML
     Route: 058
     Dates: start: 20111220
  3. REBETOL [Suspect]
     Active Substance: RIBAVIRIN
     Dosage: 3 DF, BID
     Route: 048
     Dates: start: 20120128
  4. MK-5172 [Suspect]
     Active Substance: GRAZOPREVIR ANHYDROUS
     Indication: CHRONIC HEPATITIS C
     Dosage: 400 MG, QD
     Route: 048
     Dates: start: 20111220
  5. REBETOL [Suspect]
     Active Substance: RIBAVIRIN
     Dosage: 3 DF, ONCE
     Route: 048
     Dates: start: 20120123, end: 20120123
  6. REBETOL [Suspect]
     Active Substance: RIBAVIRIN
     Dosage: 3 DF, ONCE
     Route: 048
     Dates: start: 20120127, end: 20120127
  7. REBETOL [Suspect]
     Active Substance: RIBAVIRIN
     Dosage: 3 DF, BID
     Route: 048
     Dates: start: 20120124, end: 20120126
  8. REBETOL [Suspect]
     Active Substance: RIBAVIRIN
     Indication: CHRONIC HEPATITIS C
     Dosage: 3 DF, ONCE
     Route: 048
     Dates: start: 20111220, end: 20111220

REACTIONS (3)
  - Alanine aminotransferase increased [Recovered/Resolved]
  - Aspartate aminotransferase increased [Recovered/Resolved]
  - Segmented hyalinising vasculitis [Recovered/Resolved]

NARRATIVE: CASE EVENT DATE: 20120311
